FAERS Safety Report 8573804-1 (Version None)
Quarter: 2012Q3

REPORT INFORMATION
  Report Type: 
  Country: None (occurrence: None)
  Receive Date: 20120806
  Receipt Date: 20110608
  Transmission Date: 20120928
  Serious: No
  Sender: FDA-Public Use
  Company Number: US-GLAXOSMITHKLINE-A0930775A

PATIENT
  Age: 61 Year
  Sex: Female

DRUGS (12)
  1. VASOTEC [Concomitant]
  2. ENALAPRIL MALEATE [Concomitant]
  3. TRIMARAN [Concomitant]
  4. ALLERGY MEDICATION [Concomitant]
  5. ALLEGRA [Concomitant]
  6. COUMADIN [Concomitant]
  7. SIMVASTATIN [Concomitant]
  8. ANTIHISTAMINE [Concomitant]
  9. ZOCOR [Concomitant]
  10. PRILOSEC [Concomitant]
  11. FLUTICASONE PROPIONATE [Suspect]
     Indication: PRODUCT USED FOR UNKNOWN INDICATION
     Dosage: 1PUFF TWICE PER DAY
     Route: 055
  12. NASAL SPRAY [Concomitant]

REACTIONS (1)
  - HERPES ZOSTER [None]
